FAERS Safety Report 16977226 (Version 1)
Quarter: 2019Q4

REPORT INFORMATION
  Report Type: Report from Study
  Country: None (occurrence: AR)
  Receive Date: 20191031
  Receipt Date: 20191031
  Transmission Date: 20200122
  Serious: Yes (Other)
  Sender: FDA-Public Use
  Company Number: AR-ABBVIE-19K-007-2921447-00

PATIENT
  Sex: Male

DRUGS (1)
  1. HUMIRA [Suspect]
     Active Substance: ADALIMUMAB
     Indication: PSORIATIC ARTHROPATHY
     Route: 058
     Dates: start: 20130301

REACTIONS (7)
  - Seizure [Unknown]
  - Syncope [Unknown]
  - Musculoskeletal pain [Recovering/Resolving]
  - Nervous system disorder [Unknown]
  - Hypoaesthesia [Unknown]
  - Electroencephalogram abnormal [Unknown]
  - Headache [Unknown]

NARRATIVE: CASE EVENT DATE: 2019
